FAERS Safety Report 11952974 (Version 1)
Quarter: 2016Q1

REPORT INFORMATION
  Report Type: Spontaneous
  Country: US (occurrence: US)
  Receive Date: 20160126
  Receipt Date: 20160126
  Transmission Date: 20160526
  Serious: No
  Sender: FDA-Public Use
  Company Number: US-BAUSCH-BL-2015-015107

PATIENT
  Age: 40 Year
  Sex: Female

DRUGS (3)
  1. ALAWAY [Suspect]
     Active Substance: KETOTIFEN FUMARATE
     Dosage: MORE THAN TWICE DAILY
     Route: 047
     Dates: end: 2015
  2. MULTIVITAMINS [Concomitant]
     Active Substance: VITAMINS
     Indication: PRODUCT USED FOR UNKNOWN INDICATION
  3. ALAWAY [Suspect]
     Active Substance: KETOTIFEN FUMARATE
     Indication: EYE PRURITUS
     Route: 047
     Dates: start: 2015

REACTIONS (2)
  - Drug ineffective [Unknown]
  - Visual impairment [Not Recovered/Not Resolved]
